FAERS Safety Report 6911466-7 (Version None)
Quarter: 2010Q3

REPORT INFORMATION
  Report Type: 
  Country: None (occurrence: None)
  Receive Date: 20100806
  Receipt Date: 20100727
  Transmission Date: 20110219
  Serious: Yes (Other)
  Sender: FDA-Public Use
  Company Number: US-SANOFI-AVENTIS-2010SA044901

PATIENT
  Age: 59 Year
  Sex: Female

DRUGS (1)
  1. LOVENOX [Suspect]
     Route: 065

REACTIONS (4)
  - ANTICOAGULATION DRUG LEVEL ABOVE THERAPEUTIC [None]
  - DRUG INEFFECTIVE [None]
  - INTERNATIONAL NORMALISED RATIO FLUCTUATION [None]
  - PRODUCT COUNTERFEIT [None]
